FAERS Safety Report 8538425-5 (Version None)
Quarter: 2012Q3

REPORT INFORMATION
  Report Type: 
  Country: None (occurrence: None)
  Receive Date: 20120712
  Receipt Date: 20120628
  Transmission Date: 20120928
  Serious: Yes (Other)
  Sender: FDA-Public Use
  Company Number: 2012MA008175

PATIENT
  Age: 58 Year
  Sex: Female

DRUGS (3)
  1. LISINOPRIL [Concomitant]
  2. ATENOLOL [Concomitant]
  3. CETIRIZINE HCL [Suspect]
     Indication: SEASONAL ALLERGY
     Dosage: 1 DF;QD; UNK
     Dates: start: 20110501, end: 20120604

REACTIONS (1)
  - INSOMNIA [None]
